FAERS Safety Report 8503408-8 (Version None)
Quarter: 2012Q3

REPORT INFORMATION
  Report Type: 
  Country: None (occurrence: None)
  Receive Date: 20120711
  Receipt Date: 20120702
  Transmission Date: 20120928
  Serious: Yes (Hospitalization, Other)
  Sender: FDA-Public Use
  Company Number: US-ASTRAZENECA-2012SE45115

PATIENT
  Age: 77 Year
  Sex: Female

DRUGS (2)
  1. PLAVIX [Concomitant]
  2. NEXIUM [Suspect]
     Route: 048

REACTIONS (11)
  - CHOLELITHIASIS [None]
  - MEMORY IMPAIRMENT [None]
  - STAPHYLOCOCCAL INFECTION [None]
  - MENTAL IMPAIRMENT [None]
  - HAEMORRHAGE [None]
  - GALLBLADDER DISORDER [None]
  - DIZZINESS [None]
  - HAEMORRHOIDS [None]
  - OROPHARYNGEAL PAIN [None]
  - SINUSITIS [None]
  - DIVERTICULITIS [None]
